FAERS Safety Report 8406130-1 (Version None)
Quarter: 2012Q2

REPORT INFORMATION
  Report Type: 
  Country: None (occurrence: None)
  Receive Date: 20120529
  Receipt Date: 20080704
  Transmission Date: 20120825
  Serious: Yes (Death)
  Sender: FDA-Public Use
  Company Number: 001362

PATIENT
  Age: 78 Year
  Sex: Male

DRUGS (1)
  1. PLETAL [Suspect]
     Indication: BRAIN STEM INFARCTION
     Dosage: ORAL
     Route: 048
     Dates: start: 20040101, end: 20040201

REACTIONS (4)
  - PNEUMONIA [None]
  - CARDIOGENIC SHOCK [None]
  - MYOCARDIAL INFARCTION [None]
  - CARDIAC FAILURE [None]
